FAERS Safety Report 9565375 (Version 1)
Quarter: 2013Q3

REPORT INFORMATION
  Report Type: Spontaneous
  Country: AU (occurrence: AU)
  Receive Date: 20130930
  Receipt Date: 20130930
  Transmission Date: 20140515
  Serious: Yes (Hospitalization)
  Sender: FDA-Public Use
  Company Number: AU-ASTRAZENECA-2013SE71178

PATIENT
  Age: 17997 Day
  Sex: Female

DRUGS (3)
  1. PROPOFOL [Suspect]
     Route: 042
     Dates: start: 20130715, end: 20130715
  2. FENTANYL [Suspect]
     Route: 042
     Dates: start: 20130715, end: 20130715
  3. MIDAZOLAM [Suspect]
     Route: 042
     Dates: start: 20130715, end: 20130715

REACTIONS (2)
  - Extrapyramidal disorder [Recovered/Resolved]
  - Dysarthria [Recovered/Resolved]
